FAERS Safety Report 18879902 (Version 2)
Quarter: 2021Q1

REPORT INFORMATION
  Report Type: Spontaneous
  Country: US (occurrence: US)
  Receive Date: 20210211
  Receipt Date: 20210324
  Transmission Date: 20210420
  Serious: No
  Sender: FDA-Public Use
  Company Number: US-IPSEN BIOPHARMACEUTICALS, INC.-2021-02883

PATIENT
  Age: 30 Year
  Sex: Female

DRUGS (4)
  1. DYSPORT [Suspect]
     Active Substance: ABOBOTULINUMTOXINA
     Indication: SKIN WRINKLING
     Dosage: 36 IU (16IU IN GLABELLA, 12IU IN FOREHEAD, 8IU IN CROW^S FEET)
     Route: 030
     Dates: start: 20210119, end: 20210119
  2. DYSPORT [Suspect]
     Active Substance: ABOBOTULINUMTOXINA
     Indication: OFF LABEL USE
  3. DYSPORT [Suspect]
     Active Substance: ABOBOTULINUMTOXINA
     Indication: SKIN WRINKLING
  4. DYSPORT [Suspect]
     Active Substance: ABOBOTULINUMTOXINA
     Indication: SKIN WRINKLING

REACTIONS (4)
  - Dizziness [Unknown]
  - Diplopia [Unknown]
  - Off label use [Unknown]
  - Photopsia [Unknown]

NARRATIVE: CASE EVENT DATE: 202101
